FAERS Safety Report 15224993 (Version 3)
Quarter: 2018Q3

REPORT INFORMATION
  Report Type: Spontaneous
  Country: US (occurrence: US)
  Receive Date: 20180801
  Receipt Date: 20180928
  Transmission Date: 20181010
  Serious: No
  Sender: FDA-Public Use
  Company Number: US-ASTRAZENECA-2018SE93145

PATIENT
  Sex: Female
  Weight: 74.4 kg

DRUGS (2)
  1. SYMBICORT [Suspect]
     Active Substance: BUDESONIDE\FORMOTEROL FUMARATE DIHYDRATE
     Indication: BRONCHITIS
     Dosage: 160/4.5 MICROGRAMS TWO PUFFS TWO TIMES A DAY
     Route: 055
     Dates: start: 2018
  2. SYMBICORT [Suspect]
     Active Substance: BUDESONIDE\FORMOTEROL FUMARATE DIHYDRATE
     Indication: CHRONIC OBSTRUCTIVE PULMONARY DISEASE
     Dosage: 160/4.5 MICROGRAMS TWO PUFFS TWO TIMES A DAY
     Route: 055
     Dates: start: 2018

REACTIONS (10)
  - Intentional product misuse [Unknown]
  - Device malfunction [Unknown]
  - Productive cough [Unknown]
  - Off label use [Unknown]
  - Wrong technique in product usage process [Unknown]
  - Drug dose omission [Unknown]
  - Vision blurred [Unknown]
  - Hypoacusis [Unknown]
  - Anxiety [Unknown]
  - Product use issue [Unknown]
